FAERS Safety Report 11374382 (Version 11)
Quarter: 2016Q1

REPORT INFORMATION
  Report Type: Report from Study
  Country: US (occurrence: US)
  Receive Date: 20150813
  Receipt Date: 20160330
  Transmission Date: 20160525
  Serious: No
  Sender: FDA-Public Use
  Company Number: PHEH2015US015561

PATIENT
  Age: 34 Year
  Sex: Female
  Weight: 77.98 kg

DRUGS (1)
  1. GILENYA [Suspect]
     Active Substance: FINGOLIMOD HYDROCHLORIDE
     Indication: MULTIPLE SCLEROSIS
     Dosage: 0.5 MG, QD
     Route: 048
     Dates: start: 20150808

REACTIONS (10)
  - Oropharyngeal pain [Unknown]
  - Bradycardia [Recovered/Resolved]
  - Vision blurred [Recovering/Resolving]
  - Back pain [Not Recovered/Not Resolved]
  - Muscle spasms [Unknown]
  - Nasopharyngitis [Unknown]
  - Headache [Not Recovered/Not Resolved]
  - Anxiety [Unknown]
  - Lethargy [Unknown]
  - Dyspnoea [Not Recovered/Not Resolved]

NARRATIVE: CASE EVENT DATE: 20150808
